FAERS Safety Report 10843739 (Version 3)
Quarter: 2015Q2

REPORT INFORMATION
  Report Type: Spontaneous
  Country: US (occurrence: US)
  Receive Date: 20150220
  Receipt Date: 20150424
  Transmission Date: 20150821
  Serious: Yes (Hospitalization)
  Sender: FDA-Public Use
  Company Number: US-JNJFOC-20150210947

PATIENT
  Sex: Female

DRUGS (13)
  1. CALCIUM+VITAMIN D [Concomitant]
     Active Substance: CALCIUM\VITAMIN D
     Route: 065
  2. TUMS [Concomitant]
     Active Substance: CALCIUM CARBONATE
     Route: 065
  3. VITAMIN B3 [Concomitant]
     Active Substance: NIACIN
     Route: 065
  4. ZOCOR [Concomitant]
     Active Substance: SIMVASTATIN
     Indication: BLOOD CHOLESTEROL
     Route: 065
  5. TYLENOL [Concomitant]
     Active Substance: ACETAMINOPHEN
     Route: 065
  6. IRON WITH VITAMIN C [Concomitant]
     Indication: BLOOD IRON DECREASED
     Route: 065
     Dates: start: 201308
  7. NORCO [Concomitant]
     Active Substance: ACETAMINOPHEN\HYDROCODONE BITARTRATE
     Route: 065
  8. PRILOSEC [Concomitant]
     Active Substance: OMEPRAZOLE MAGNESIUM
     Indication: GASTROOESOPHAGEAL REFLUX DISEASE
     Route: 065
  9. COLACE [Concomitant]
     Active Substance: DOCUSATE SODIUM
     Route: 065
  10. SYNTHROID [Concomitant]
     Active Substance: LEVOTHYROXINE SODIUM
     Indication: HYPOTHYROIDISM
     Route: 065
     Dates: start: 2000
  11. XARELTO [Suspect]
     Active Substance: RIVAROXABAN
     Indication: THROMBOSIS PROPHYLAXIS
     Route: 048
     Dates: start: 20130625, end: 20130708
  12. XARELTO [Suspect]
     Active Substance: RIVAROXABAN
     Indication: HIP ARTHROPLASTY
     Route: 048
     Dates: start: 20130625, end: 20130708
  13. VITAMIN D [Concomitant]
     Active Substance: CHOLECALCIFEROL
     Route: 065

REACTIONS (8)
  - Large intestine perforation [Recovered/Resolved]
  - Shock haemorrhagic [Recovered/Resolved]
  - Lower gastrointestinal haemorrhage [Recovered/Resolved]
  - Atrial fibrillation [Recovered/Resolved]
  - Coagulopathy [Recovered/Resolved]
  - Haemorrhagic anaemia [Recovered/Resolved]
  - Wound evisceration [Recovered/Resolved]
  - Mesenteric haemorrhage [Recovered/Resolved]
